FAERS Safety Report 8127539-X (Version None)
Quarter: 2012Q1

REPORT INFORMATION
  Report Type: 
  Country: None (occurrence: None)
  Receive Date: 20120210
  Receipt Date: 20120202
  Transmission Date: 20120608
  Serious: Yes (Hospitalization)
  Sender: FDA-Public Use
  Company Number: FR-VERTEX PHARMACEUTICALS INC.-000000000000000147

PATIENT
  Age: 60 Year
  Sex: Male

DRUGS (1)
  1. INCIVO (TELAPREVIR) [Suspect]
     Indication: HEPATITIS C
     Dosage: DOSAGE FORM: TABLET

REACTIONS (4)
  - RENAL FAILURE [None]
  - DIARRHOEA [None]
  - DEHYDRATION [None]
  - PROCTALGIA [None]
